FAERS Safety Report 7897557-5 (Version None)
Quarter: 2011Q4

REPORT INFORMATION
  Report Type: 
  Country: None (occurrence: None)
  Receive Date: 20111107
  Receipt Date: 20111025
  Transmission Date: 20120403
  Serious: Yes (Hospitalization, Other)
  Sender: FDA-Public Use
  Company Number: DK-ELI_LILLY_AND_COMPANY-DK201110006485

PATIENT
  Sex: Male

DRUGS (2)
  1. EFFIENT [Suspect]
     Indication: ANTICOAGULANT THERAPY
     Dosage: 10 MG, QD
     Route: 048
     Dates: start: 20110727, end: 20110919
  2. METOPROLOL SUCCINATE [Concomitant]
     Indication: HEART RATE
     Dosage: UNK, UNKNOWN
     Route: 048
     Dates: start: 20110727

REACTIONS (2)
  - VERTIGO [None]
  - MIGRAINE [None]
